FAERS Safety Report 11253592 (Version 1)
Quarter: 2015Q3

REPORT INFORMATION
  Report Type: Spontaneous
  Country: SE (occurrence: SE)
  Receive Date: 20150709
  Receipt Date: 20150709
  Transmission Date: 20151125
  Serious: Yes (Hospitalization)
  Sender: FDA-Public Use
  Company Number: SE-MERCK-1507SWE001992

PATIENT
  Age: 91 Year
  Sex: Male

DRUGS (1)
  1. MIRTAZAPINE. [Suspect]
     Active Substance: MIRTAZAPINE
     Dosage: 30 MG, UNK
     Route: 048

REACTIONS (2)
  - Drug prescribing error [Recovered/Resolved]
  - Confusional state [Recovered/Resolved]
